FAERS Safety Report 24830394 (Version 1)
Quarter: 2025Q1

REPORT INFORMATION
  Report Type: Spontaneous
  Country: US (occurrence: US)
  Receive Date: 20250110
  Receipt Date: 20250110
  Transmission Date: 20250409
  Serious: Yes (Life-Threatening, Hospitalization, Other)
  Sender: HIKMA
  Company Number: US-MLMSERVICE-20241223-PI317183-00273-1

PATIENT
  Age: 58 Year
  Sex: Male
  Weight: 140 kg

DRUGS (1)
  1. PROPOFOL [Suspect]
     Active Substance: PROPOFOL
     Indication: Sedative therapy
     Route: 042

REACTIONS (8)
  - Agitation [Recovering/Resolving]
  - Paradoxical drug reaction [Recovering/Resolving]
  - Disorientation [Recovering/Resolving]
  - Muscle spasms [Recovering/Resolving]
  - Opisthotonus [Recovering/Resolving]
  - Flushing [Recovering/Resolving]
  - Body temperature increased [Recovering/Resolving]
  - Oxygen saturation decreased [Recovering/Resolving]
